FAERS Safety Report 5669895-8 (Version None)
Quarter: 2008Q1

REPORT INFORMATION
  Report Type: 
  Country: None (occurrence: None)
  Receive Date: 20080314
  Receipt Date: 20080314
  Transmission Date: 20080703
  Serious: Yes (Other)
  Sender: FDA-Public Use
  Company Number: None

PATIENT
  Age: 44 Year
  Sex: Female

DRUGS (1)
  1. LEVOTHYROXINE SODIUM [Suspect]
     Dosage: 125 MCG DAILY PO
     Route: 048
     Dates: start: 20020528, end: 20030520

REACTIONS (1)
  - DRUG EFFECT DECREASED [None]
